FAERS Safety Report 9290933 (Version 4)
Quarter: 2013Q3

REPORT INFORMATION
  Report Type: Spontaneous
  Country: US (occurrence: US)
  Receive Date: 20130515
  Receipt Date: 20130722
  Transmission Date: 20140515
  Serious: Yes (Other)
  Sender: FDA-Public Use
  Company Number: US-JNJFOC-20130505117

PATIENT
  Age: 52 Year
  Sex: Female
  Weight: 46.72 kg

DRUGS (15)
  1. REMICADE [Suspect]
     Indication: RHEUMATOID ARTHRITIS
     Route: 042
     Dates: start: 20130410
  2. REMICADE [Suspect]
     Indication: RHEUMATOID ARTHRITIS
     Route: 042
     Dates: start: 20130425
  3. REMICADE [Suspect]
     Indication: RHEUMATOID ARTHRITIS
     Route: 042
     Dates: end: 201305
  4. SIMPONI [Suspect]
     Indication: RHEUMATOID ARTHRITIS
     Route: 058
     Dates: start: 201012, end: 201202
  5. MOTRIN [Concomitant]
     Indication: RHEUMATOID ARTHRITIS
     Dosage: DOSAGE FREQUENCY: 2 TO 3 TIMES DAILY
     Route: 048
  6. METHOTREXATE [Concomitant]
     Indication: RHEUMATOID ARTHRITIS
     Dosage: DOSAGE: 25 MG PER CC TO 0.66 CC (CUBIC CENTIMETER)
     Route: 058
  7. PREDNISONE [Concomitant]
     Indication: RHEUMATOID ARTHRITIS
     Route: 048
  8. HUMIRA [Concomitant]
     Indication: RHEUMATOID ARTHRITIS
     Route: 065
     Dates: start: 201001, end: 201007
  9. ENBREL [Concomitant]
     Indication: RHEUMATOID ARTHRITIS
     Route: 065
     Dates: start: 201203, end: 201205
  10. CIMZIA [Concomitant]
     Indication: RHEUMATOID ARTHRITIS
     Route: 065
     Dates: start: 201205, end: 201210
  11. ACTEMRA [Concomitant]
     Indication: RHEUMATOID ARTHRITIS
     Route: 065
     Dates: start: 201212, end: 201303
  12. ASPIRIN [Concomitant]
     Route: 048
  13. IBUPROFEN [Concomitant]
     Route: 065
  14. TYLENOL [Concomitant]
     Indication: PREMEDICATION
     Route: 048
     Dates: start: 20130425
  15. LORATADINE [Concomitant]
     Indication: PREMEDICATION
     Route: 048
     Dates: start: 20130425

REACTIONS (3)
  - Drug hypersensitivity [Recovered/Resolved]
  - Rheumatoid arthritis [Recovered/Resolved]
  - Tachycardia [Recovered/Resolved]
